FAERS Safety Report 18232125 (Version 1)
Quarter: 2020Q3

REPORT INFORMATION
  Report Type: Spontaneous
  Country: US (occurrence: US)
  Receive Date: 20200903
  Receipt Date: 20200903
  Transmission Date: 20201103
  Serious: No
  Sender: FDA-Public Use
  Company Number: None

PATIENT
  Age: 28 Year

DRUGS (7)
  1. RIZATRIPTAN. [Concomitant]
     Active Substance: RIZATRIPTAN
  2. TOPIRAMATE. [Concomitant]
     Active Substance: TOPIRAMATE
  3. IBUPROFEN. [Concomitant]
     Active Substance: IBUPROFEN
  4. NEURONTIN [Concomitant]
     Active Substance: GABAPENTIN
  5. LASIX [Concomitant]
     Active Substance: FUROSEMIDE
  6. PROGESTERONE. [Concomitant]
     Active Substance: PROGESTERONE
  7. AIMOVIG [Suspect]
     Active Substance: ERENUMAB-AOOE
     Indication: MIGRAINE
     Dosage: ?          QUANTITY:1 ML MILLILITRE(S);?
     Route: 058
     Dates: start: 20200601

REACTIONS (1)
  - Alopecia [None]

NARRATIVE: CASE EVENT DATE: 20200903
